FAERS Safety Report 18057898 (Version 2)
Quarter: 2020Q3

REPORT INFORMATION
  Report Type: Spontaneous
  Country: FR (occurrence: FR)
  Receive Date: 20200723
  Receipt Date: 20200902
  Transmission Date: 20201103
  Serious: Yes (Other)
  Sender: FDA-Public Use
  Company Number: FR-TEVA-2020-FR-1803198

PATIENT
  Age: 20 Year
  Sex: Female

DRUGS (7)
  1. DIAMOX SEQUELS [Concomitant]
     Active Substance: ACETAZOLAMIDE
  2. INNOHEP [Concomitant]
     Active Substance: TINZAPARIN SODIUM
  3. LUTENYL [Suspect]
     Active Substance: NOMEGESTROL ACETATE
     Indication: ORAL CONTRACEPTION
     Route: 048
  4. PARACETAMOL [Concomitant]
     Active Substance: ACETAMINOPHEN
  5. VESANOID [Suspect]
     Active Substance: TRETINOIN
     Indication: ACUTE MYELOID LEUKAEMIA
     Route: 048
     Dates: start: 20200131, end: 20200504
  6. TRISENOX [Suspect]
     Active Substance: ARSENIC TRIOXIDE
     Indication: ACUTE MYELOID LEUKAEMIA
     Route: 042
     Dates: start: 20200224, end: 20200503
  7. DIFFU K [Concomitant]
     Active Substance: POTASSIUM CHLORIDE

REACTIONS (1)
  - Intracranial pressure increased [Recovered/Resolved]

NARRATIVE: CASE EVENT DATE: 20200430
